FAERS Safety Report 19691187 (Version 1)
Quarter: 2021Q3

REPORT INFORMATION
  Report Type: Spontaneous
  Country: TR (occurrence: TR)
  Receive Date: 20210812
  Receipt Date: 20210812
  Transmission Date: 20211014
  Serious: Yes (Life-Threatening, Other)
  Sender: FDA-Public Use
  Company Number: TR-AMERICAN REGENT INC-2021002093

PATIENT
  Age: 75 Year
  Sex: Male
  Weight: 83 kg

DRUGS (1)
  1. FERINJECT [Suspect]
     Active Substance: FERRIC CARBOXYMALTOSE
     Indication: PRODUCT USED FOR UNKNOWN INDICATION
     Dosage: 500 MG
     Route: 042
     Dates: start: 20210707, end: 20210707

REACTIONS (3)
  - Dyspnoea [Recovered/Resolved]
  - Respiratory distress [Unknown]
  - COVID-19 [Unknown]

NARRATIVE: CASE EVENT DATE: 202107
